FAERS Safety Report 10010953 (Version 1)
Quarter: 2014Q1

REPORT INFORMATION
  Report Type: Report from Study
  Country: DE (occurrence: None)
  Receive Date: 20140311
  Receipt Date: 20140311
  Transmission Date: 20141002
  Serious: Yes (Hospitalization)
  Sender: FDA-Public Use
  Company Number: 2014-DE-002529

PATIENT
  Age: 68 Year
  Sex: Female

DRUGS (14)
  1. XYREM [Suspect]
     Indication: NARCOLEPSY
     Dates: start: 20130828, end: 20130829
  2. XYREM [Suspect]
     Indication: CATAPLEXY
     Dates: start: 20130828, end: 20130829
  3. ATENOLOL (ATENOLOL) [Concomitant]
  4. SIMVASTATIN (SIMVASTATIN) [Concomitant]
  5. LISIHEXAL [Concomitant]
  6. ANAFRANIL (CLOMIPRAMINE HYDROCHLORIDE) [Concomitant]
  7. HCT HEXAL ( HYDROCHLOROTHIAZIDE) [Concomitant]
  8. L-THYROXIN (LEVOTHYROXINE SODIUM) [Concomitant]
  9. METFORMIN (METFORMIN HYDROCHLORIDE) [Concomitant]
  10. ASS (ACETYLSALICYLIC ACID) [Concomitant]
  11. EPHEDRINE (EPHEDRINE HYDROCHLORIDE) [Concomitant]
  12. VIGIL (MODAFINIL) [Concomitant]
  13. HUMALOG [Concomitant]
  14. PROTAPHANE [Concomitant]

REACTIONS (2)
  - Bladder neoplasm [None]
  - Bladder cancer [None]
